FAERS Safety Report 13234642 (Version 2)
Quarter: 2017Q1

REPORT INFORMATION
  Report Type: Report from Study
  Country: DE (occurrence: DE)
  Receive Date: 20170215
  Receipt Date: 20170303
  Transmission Date: 20170428
  Serious: Yes (Hospitalization)
  Sender: FDA-Public Use
  Company Number: PHHO2017DE003067

PATIENT
  Sex: Male
  Weight: 25.4 kg

DRUGS (2)
  1. NEORAL [Suspect]
     Active Substance: CYCLOSPORINE
     Indication: RENAL TRANSPLANT
     Dosage: 40 MG, BID
     Route: 048
     Dates: start: 20150427
  2. EVEROLIMUS [Suspect]
     Active Substance: EVEROLIMUS
     Indication: RENAL TRANSPLANT
     Dosage: 0.4 MG, BID
     Route: 048
     Dates: start: 20150526

REACTIONS (2)
  - Viral infection [Recovered/Resolved]
  - Dehydration [Recovered/Resolved]
